FAERS Safety Report 7777566 (Version 8)
Quarter: 2012Q4

REPORT INFORMATION
  Report Type: 
  Country: US (occurrence: US)
  Receive Date: 20110128
  Receipt Date: 20121011
  Transmission Date: 20130627
  Serious: Yes (Hospitalization, Other)
  Sender: FDA-Public Use
  Company Number: US-BAYER-201023785NA

PATIENT
  Age: 20 Year
  Sex: Female
  Weight: 81.63 kg

DRUGS (8)
  1. YASMIN [Suspect]
     Indication: POLYCYSTIC OVARIES
     Dosage: UNK
     Dates: start: 200804, end: 200910
  2. OCELLA [Suspect]
     Indication: POLYCYSTIC OVARIES
     Dosage: UNK
     Dates: start: 200804, end: 200910
  3. VITAMIN C [Concomitant]
  4. ANTIBIOTICS [Concomitant]
  5. HYDROCODONE W/APAP [Concomitant]
     Indication: VIRAL INFECTION
     Dosage: 1 mg, UNK
     Dates: start: 20091103
  6. MOTRIN [Concomitant]
     Indication: MYALGIA
     Dosage: 600 mg, UNK
     Dates: start: 20091104
  7. TRAMADOL [Concomitant]
     Dosage: 50 mg, UNK
     Dates: start: 20091121
  8. VICODIN [Concomitant]
     Indication: MYALGIA
     Dosage: UNK
     Dates: start: 20091103

REACTIONS (7)
  - Pulmonary embolism [Recovered/Resolved]
  - Deep vein thrombosis [Recovered/Resolved]
  - Phlebitis [Unknown]
  - Varicose vein [None]
  - Depression [None]
  - Anxiety [None]
  - Suicidal ideation [None]
